FAERS Safety Report 12935713 (Version 1)
Quarter: 2016Q4

REPORT INFORMATION
  Report Type: Spontaneous
  Country: US (occurrence: US)
  Receive Date: 20161114
  Receipt Date: 20161114
  Transmission Date: 20170207
  Serious: No
  Sender: FDA-Public Use
  Company Number: US-TEVA-705844USA

PATIENT
  Sex: Female

DRUGS (1)
  1. LORAZEPAM. [Suspect]
     Active Substance: LORAZEPAM
     Indication: DEPRESSION
     Dosage: TAKE ONE TABLET EVERY 2-4 HOURS AS NEEDED
     Route: 048

REACTIONS (5)
  - Vision blurred [Unknown]
  - Gait disturbance [Unknown]
  - Limb discomfort [Unknown]
  - Drug effect decreased [Unknown]
  - Nausea [Unknown]
